FAERS Safety Report 5119003-7 (Version None)
Quarter: 2006Q3

REPORT INFORMATION
  Report Type: 
  Country: None (occurrence: None)
  Receive Date: 20060927
  Receipt Date: 20060912
  Transmission Date: 20061208
  Serious: Yes (Hospitalization, Other)
  Sender: FDA-Public Use
  Company Number: GXKR2006ES05660

PATIENT
  Age: 72 Year
  Sex: Female

DRUGS (2)
  1. AMIODARONE HCL [Suspect]
     Indication: ATRIAL FIBRILLATION
     Dosage: 200 MG QD
     Dates: start: 20020101, end: 20050401
  2. THIAMAZOLE (NGX) (THIAMAZOLE) [Suspect]
     Indication: HYPERTHYROIDISM

REACTIONS (6)
  - AGRANULOCYTOSIS [None]
  - ATRIAL FIBRILLATION [None]
  - CHOLANGITIS [None]
  - HYPERTHYROIDISM [None]
  - HYPOTHYROIDISM [None]
  - THERAPY NON-RESPONDER [None]
